FAERS Safety Report 4698283-6 (Version None)
Quarter: 2005Q2

REPORT INFORMATION
  Report Type: 
  Country: None (occurrence: None)
  Receive Date: 20050621
  Receipt Date: 20050606
  Transmission Date: 20051028
  Serious: Yes (Hospitalization)
  Sender: FDA-Public Use
  Company Number: WAES 0504GBR00143

PATIENT
  Age: 66 Year
  Sex: Male

DRUGS (14)
  1. VYTORIN [Suspect]
     Indication: ACUTE CORONARY SYNDROME
     Dosage: 10-40 MG/DAILY PO
     Dates: start: 20050418
  2. AMLODIPINE BESYLATE [Concomitant]
  3. ASPIRIN [Concomitant]
  4. ASPIRIN [Concomitant]
  5. ATENOLOL [Concomitant]
  6. ATORVASTATIN CALCIUM [Concomitant]
  7. CLOPIDOGREL BISULFATE [Concomitant]
  8. CLOPIDOGREL BISULFATE [Concomitant]
  9. FERROUSSO4 [Concomitant]
  10. INSULIN, BIPHASIC ISOPHANE [INJECTION] [Concomitant]
  11. ISOSORBIDE MONONITRATE [Concomitant]
  12. LANSOPRAZOLE [Concomitant]
  13. NICORANDIL [Concomitant]
  14. RAMIPRIL [Concomitant]

REACTIONS (1)
  - CHEST PAIN [None]
